FAERS Safety Report 16320681 (Version 1)
Quarter: 2019Q2

REPORT INFORMATION
  Report Type: Spontaneous
  Country: AU (occurrence: AU)
  Receive Date: 20190516
  Receipt Date: 20190516
  Transmission Date: 20190711
  Serious: Yes (Other)
  Sender: FDA-Public Use
  Company Number: AU-TEVA-2019-AU-1050651

PATIENT

DRUGS (1)
  1. RIBOMUSTIN [Suspect]
     Active Substance: BENDAMUSTINE HYDROCHLORIDE
     Indication: WALDENSTROM^S MACROGLOBULINAEMIA
     Dosage: 90 MG/M2 CYCLIC (2 CYCLES OF TREATMENT)
     Route: 042

REACTIONS (2)
  - Product use in unapproved indication [Unknown]
  - Nephrotic syndrome [Unknown]
